FAERS Safety Report 6886208 (Version 4)
Quarter: 2012Q4

REPORT INFORMATION
  Report Type: Report from Study
  Country: US (occurrence: US)
  Receive Date: 20090119
  Receipt Date: 20121224
  Transmission Date: 20130627
  Serious: Yes (Death)
  Sender: FDA-Public Use
  Company Number: US-ROCHE-607058

PATIENT
  Age: 67 Year
  Sex: Male
  Weight: 80.7 kg

DRUGS (1)
  1. CAPECITABINE [Suspect]
     Indication: GASTROOESOPHAGEAL CANCER
     Route: 048

REACTIONS (1)
  - Disease progression [Fatal]
